FAERS Safety Report 14561633 (Version 1)
Quarter: 2018Q1

REPORT INFORMATION
  Report Type: Spontaneous
  Country: US (occurrence: US)
  Receive Date: 20180222
  Receipt Date: 20180222
  Transmission Date: 20180509
  Serious: No
  Sender: FDA-Public Use
  Company Number: US-BAYER-2018-034504

PATIENT
  Age: 51 Year
  Sex: Female

DRUGS (1)
  1. CLIMARA PRO [Suspect]
     Active Substance: ESTRADIOL\LEVONORGESTREL
     Indication: HORMONE REPLACEMENT THERAPY
     Dosage: UNK
     Route: 062
     Dates: start: 201708

REACTIONS (6)
  - Medical device discomfort [Not Recovered/Not Resolved]
  - Product physical issue [None]
  - Product shape issue [Not Recovered/Not Resolved]
  - Wrong technique in product usage process [None]
  - Underdose [None]
  - Device breakage [None]

NARRATIVE: CASE EVENT DATE: 20180220
